FAERS Safety Report 10676488 (Version 2)
Quarter: 2015Q1

REPORT INFORMATION
  Report Type: Spontaneous
  Country: US (occurrence: US)
  Receive Date: 20141226
  Receipt Date: 20150108
  Transmission Date: 20150720
  Serious: No
  Sender: FDA-Public Use
  Company Number: US-BAYER-2014-189052

PATIENT
  Age: 69 Year
  Sex: Male

DRUGS (1)
  1. MAGNEVIST [Suspect]
     Active Substance: GADOPENTETATE DIMEGLUMINE
     Indication: NUCLEAR MAGNETIC RESONANCE IMAGING ABDOMINAL
     Dosage: 17 ML, ONCE
     Route: 042
     Dates: start: 20141219, end: 20141219

REACTIONS (2)
  - Pruritus [None]
  - Papule [None]

NARRATIVE: CASE EVENT DATE: 20141219
